FAERS Safety Report 5972529-6 (Version None)
Quarter: 2008Q4

REPORT INFORMATION
  Report Type: 
  Country: None (occurrence: None)
  Receive Date: 20081201
  Receipt Date: 20081117
  Transmission Date: 20090506
  Serious: Yes (Hospitalization)
  Sender: FDA-Public Use
  Company Number: B0546611A

PATIENT
  Age: 59 Year
  Sex: Female

DRUGS (10)
  1. AUGMENTIN '125' [Suspect]
     Dosage: 3G PER DAY
     Route: 048
     Dates: start: 20070309, end: 20070323
  2. ATARAX [Suspect]
     Dosage: 100MG PER DAY
     Route: 048
     Dates: start: 20070301, end: 20070320
  3. NOCTAMIDE [Suspect]
     Dosage: 1UNIT PER DAY
     Route: 048
     Dates: start: 20070216, end: 20070323
  4. IXEL [Suspect]
     Indication: DEPRESSION
     Route: 048
     Dates: start: 20070316, end: 20070322
  5. LEPTICUR [Suspect]
     Dosage: 10MG TWENTY FOUR TIMES PER DAY
     Route: 048
     Dates: start: 20070317
  6. ANAFRANIL [Suspect]
     Indication: DEPRESSION
     Dosage: 25MG PER DAY
     Route: 048
     Dates: start: 20070326
  7. TRANXENE [Suspect]
     Dosage: 20MG FIVE TIMES PER DAY
     Route: 048
     Dates: start: 20070216
  8. ACETAMINOPHEN [Suspect]
     Route: 048
     Dates: start: 20070201
  9. PLATELETS [Concomitant]
     Route: 042
     Dates: start: 20070307, end: 20070314
  10. RED BLOOD CELLS [Concomitant]
     Dosage: 2UNIT PER DAY
     Route: 042
     Dates: start: 20080307, end: 20080307

REACTIONS (4)
  - BRAIN HERNIATION [None]
  - FALL [None]
  - SUBDURAL HAEMATOMA [None]
  - SUBDURAL HAEMORRHAGE [None]
